FAERS Safety Report 5523002-0 (Version None)
Quarter: 2007Q4

REPORT INFORMATION
  Report Type: 
  Country: None (occurrence: None)
  Receive Date: 20071116
  Receipt Date: 20071102
  Transmission Date: 20080405
  Serious: Yes (Hospitalization)
  Sender: FDA-Public Use
  Company Number: 2007BI005925

PATIENT
  Age: 51 Year
  Sex: Female
  Weight: 89.8122 kg

DRUGS (20)
  1. AVONEX [Suspect]
     Indication: MULTIPLE SCLEROSIS
     Dosage: 30 UG; QW; IM
     Route: 030
     Dates: start: 20051201
  2. RELPAX [Concomitant]
  3. FIORICET [Concomitant]
  4. PHENERGAN HCL [Concomitant]
  5. ARICEPT [Concomitant]
  6. TOPAMAX [Concomitant]
  7. ATENOLOL [Concomitant]
  8. DITROPAN [Concomitant]
  9. AVAPRO [Concomitant]
  10. LYRICA [Concomitant]
  11. DYAZIDE [Concomitant]
  12. FLOMAX [Concomitant]
  13. POTASSIUM CHLORIDE [Concomitant]
  14. NEXZUM [Concomitant]
  15. ZYRTEC [Concomitant]
  16. XANAX [Concomitant]
  17. CHOLESTYRAMINE [Concomitant]
  18. FORTEO [Concomitant]
  19. LEXAPRO [Concomitant]
  20. ULTRAM [Concomitant]

REACTIONS (3)
  - BLOOD POTASSIUM DECREASED [None]
  - BLOOD PRESSURE DECREASED [None]
  - HEART RATE DECREASED [None]
